FAERS Safety Report 5376658-X (Version None)
Quarter: 2007Q2

REPORT INFORMATION
  Report Type: 
  Country: None (occurrence: None)
  Receive Date: 20070629
  Receipt Date: 20070615
  Transmission Date: 20071010
  Serious: Yes (Hospitalization)
  Sender: FDA-Public Use
  Company Number: 2007S1000574

PATIENT
  Sex: Male

DRUGS (1)
  1. MERCAPTAMINE BITARTRATE (MERCAPTAMINE BITARTRATE) [Suspect]
     Indication: CYSTINOSIS
     Dosage: 6.230 MG/KG/ DAILY; ORAL
     Route: 048

REACTIONS (3)
  - ABDOMINAL PAIN [None]
  - APPETITE DISORDER [None]
  - NAUSEA [None]
